FAERS Safety Report 8843166 (Version 2)
Quarter: 2012Q4

REPORT INFORMATION
  Report Type: Report from Study
  Country: JP (occurrence: JP)
  Receive Date: 20121016
  Receipt Date: 20121129
  Transmission Date: 20130627
  Serious: Yes (Hospitalization)
  Sender: FDA-Public Use
  Company Number: JP-JNJFOC-20121008277

PATIENT
  Age: 76 Year
  Sex: Female
  Weight: 44 kg

DRUGS (6)
  1. SIMPONI [Suspect]
     Indication: RHEUMATOID ARTHRITIS
     Route: 058
     Dates: start: 20120411, end: 20120411
  2. CEFAMEZIN ALPHA [Concomitant]
     Route: 041
     Dates: start: 20120420, end: 20120424
  3. PENTCILLIN [Concomitant]
     Route: 042
     Dates: start: 20120425, end: 20120501
  4. MEROPEN(MEROPENEM) [Concomitant]
     Route: 041
     Dates: start: 20120502, end: 20120508
  5. SULPERAZON [Concomitant]
     Route: 042
     Dates: start: 20120509, end: 20120515
  6. CRAVIT [Concomitant]
     Route: 048
     Dates: start: 20120516, end: 20120522

REACTIONS (2)
  - Cellulitis [Recovered/Resolved]
  - Pneumonia [Recovered/Resolved]
